FAERS Safety Report 12930184 (Version 1)
Quarter: 2016Q4

REPORT INFORMATION
  Report Type: Spontaneous
  Country: US (occurrence: US)
  Receive Date: 20161111
  Receipt Date: 20161111
  Transmission Date: 20170207
  Serious: No
  Sender: FDA-Public Use
  Company Number: None

PATIENT
  Age: 32 Year
  Sex: Female
  Weight: 65 kg

DRUGS (1)
  1. ARLEVERT [Suspect]
     Active Substance: CINNARIZINE\DIMENHYDRINATE
     Indication: MOTION SICKNESS
     Dosage: QUANTITY:1 TABLET(S); AS NEEDED; ORAL?
     Route: 048
     Dates: start: 20161102, end: 20161103

REACTIONS (3)
  - Peripheral coldness [None]
  - Hypoaesthesia [None]
  - Tremor [None]

NARRATIVE: CASE EVENT DATE: 20161102
